FAERS Safety Report 25494091 (Version 1)
Quarter: 2025Q2

REPORT INFORMATION
  Report Type: Spontaneous
  Country: US (occurrence: US)
  Receive Date: 20250630
  Receipt Date: 20250630
  Transmission Date: 20250717
  Serious: No
  Sender: IPSEN BIOPHARMACEUTICALS, INC.
  Company Number: US-IPSEN Group, Research and Development-2025-15159

PATIENT
  Age: 11 Year
  Sex: Male
  Weight: 33 kg

DRUGS (10)
  1. INCRELEX [Suspect]
     Active Substance: MECASERMIN
     Indication: Primary insulin like growth factor-1 deficiency
     Dosage: 3.6 MG BID?SUBCUTANEOUS
     Route: 058
     Dates: start: 20250107
  2. ALBUTEROL [Concomitant]
     Active Substance: ALBUTEROL
     Indication: Primary insulin like growth factor-1 deficiency
  3. BENADRYL [Concomitant]
     Active Substance: DIPHENHYDRAMINE HYDROCHLORIDE
  4. Budesonide Inhalation Solution [Concomitant]
  5. EPIPEN JR [Concomitant]
     Active Substance: EPINEPHRINE
  6. FLONASE [Concomitant]
     Active Substance: FLUTICASONE PROPIONATE
  7. IBUPROFEN [Concomitant]
     Active Substance: IBUPROFEN
  8. Levocetirizine Solution [Concomitant]
  9. Multivitamin Tablet [Concomitant]
  10. QVAR [Concomitant]
     Active Substance: BECLOMETHASONE DIPROPIONATE

REACTIONS (2)
  - Decreased appetite [Recovered/Resolved]
  - Viral infection [Recovered/Resolved]
